FAERS Safety Report 5922158 (Version 20)
Quarter: 2013Q2

REPORT INFORMATION
  Report Type: Spontaneous
  Country: US (occurrence: US)
  Receive Date: 20051114
  Receipt Date: 20130627
  Transmission Date: 20140414
  Serious: Yes (Hospitalization, Disabling, Other)
  Sender: FDA-Public Use
  Company Number: US-ROCHE-423642

PATIENT
  Age: 46 Year
  Sex: Male
  Weight: 81.6 kg

DRUGS (6)
  1. ACCUTANE [Suspect]
     Indication: ACNE CYSTIC
     Dosage: INDICATION REPORTED AS CYSTIC ACNE AND FOLLICULITIS.
     Route: 048
  2. ACCUTANE [Suspect]
     Dosage: 40 MG BIWEEKLY AFTER THE FIRST MONTH. 40 MG EVERY THIRD DAY AFTER THE THIRD MONTH.
     Route: 048
  3. ACCUTANE [Suspect]
     Dosage: 40 MG AFTER BIWEEKLY FOR 1 MONTH. 40MG EVERY 10TH DAY AFTER THE SECOND MONTH.
     Route: 048
  4. COZAAR [Concomitant]
     Indication: HYPERTENSION
  5. CLARITIN-D [Concomitant]
  6. FIORICET [Concomitant]

REACTIONS (13)
  - Gastrointestinal disorder [Unknown]
  - Inflammatory bowel disease [Unknown]
  - Colitis [Unknown]
  - Crohn^s disease [Unknown]
  - Intestinal haemorrhage [Unknown]
  - Colitis ulcerative [Recovering/Resolving]
  - Sinus arrhythmia [Recovered/Resolved]
  - Hypophosphataemia [Recovered/Resolved]
  - Hypertension [Unknown]
  - Urinary retention [Unknown]
  - Depression [Not Recovered/Not Resolved]
  - Supraventricular tachycardia [Unknown]
  - Anxiety [Unknown]
